FAERS Safety Report 6768599-8 (Version None)
Quarter: 2010Q2

REPORT INFORMATION
  Report Type: 
  Country: None (occurrence: None)
  Receive Date: 20100614
  Receipt Date: 20100602
  Transmission Date: 20101027
  Serious: Yes (Hospitalization)
  Sender: FDA-Public Use
  Company Number: FR-PFIZER INC-2010068829

PATIENT
  Age: 7 Month
  Sex: Female

DRUGS (3)
  1. VFEND [Suspect]
     Indication: ASPERGILLOSIS
     Dosage: 200 MG, 2X/DAY
     Route: 048
     Dates: start: 20100414, end: 20100428
  2. BACTRIM [Suspect]
     Dosage: 1 DF, 2X/DAY
     Route: 048
     Dates: start: 20100420, end: 20100428
  3. CIFLOX [Suspect]
     Dosage: 0.6 ML, 3X/DAY
     Route: 048
     Dates: start: 20100420, end: 20100428

REACTIONS (3)
  - CHOLESTASIS [None]
  - CYTOLYTIC HEPATITIS [None]
  - HYPERCHOLESTEROLAEMIA [None]
